FAERS Safety Report 17948720 (Version 2)
Quarter: 2023Q1

REPORT INFORMATION
  Report Type: Report from Study
  Country: US (occurrence: US)
  Receive Date: 20200626
  Receipt Date: 20230130
  Transmission Date: 20230417
  Serious: Yes (Hospitalization, Other)
  Sender: FDA-Public Use
  Company Number: US-ACADIA PHARMACEUTICALS INC.-ACA-2020-PIM-001821

PATIENT
  Age: 75 Year
  Sex: Male

DRUGS (10)
  1. NUPLAZID [Suspect]
     Active Substance: PIMAVANSERIN TARTRATE
     Indication: Parkinson^s disease psychosis
     Dosage: 34 MILLIGRAM, QD
     Route: 048
     Dates: start: 20200530
  2. NUPLAZID [Suspect]
     Active Substance: PIMAVANSERIN TARTRATE
     Indication: Hallucination
  3. NUPLAZID [Suspect]
     Active Substance: PIMAVANSERIN TARTRATE
     Indication: Delusion
  4. CARBIDOPA\LEVODOPA [Concomitant]
     Active Substance: CARBIDOPA\LEVODOPA
  5. AMLODIPINE [Concomitant]
     Active Substance: AMLODIPINE BESYLATE
     Dosage: 5 MILLIGRAM
  6. OXYBUTYNIN [Concomitant]
     Active Substance: OXYBUTYNIN
     Dosage: 10 MILLIGRAM
  7. CELECOXIB [Concomitant]
     Active Substance: CELECOXIB
     Dosage: 20 MILLIGRAM
  8. TRAZODONE [Concomitant]
     Active Substance: TRAZODONE HYDROCHLORIDE
     Dosage: 50 MILLIGRAM, 1/2 TABLET HS
  9. HYDROCHLOROTHIAZIDE [Concomitant]
     Active Substance: HYDROCHLOROTHIAZIDE
     Dosage: 12.5 MG 1/5 TABLET
  10. TRAMADOL [Concomitant]
     Active Substance: TRAMADOL
     Dosage: 50 MILLIGRAM

REACTIONS (4)
  - Femur fracture [Not Recovered/Not Resolved]
  - Fall [Not Recovered/Not Resolved]
  - Hallucination [Not Recovered/Not Resolved]
  - Drug ineffective [Unknown]

NARRATIVE: CASE EVENT DATE: 20230117
